FAERS Safety Report 14226148 (Version 1)
Quarter: 2017Q4

REPORT INFORMATION
  Report Type: Spontaneous
  Country: US (occurrence: None)
  Receive Date: 20171124
  Receipt Date: 20171124
  Transmission Date: 20180321
  Serious: No
  Sender: FDA-Public Use
  Company Number: None

PATIENT
  Age: 33 Year
  Sex: Male
  Weight: 53 kg

DRUGS (1)
  1. CEFTOLOZANE/TAZOBACTAM 1.5GM MERCK [Suspect]
     Active Substance: CEFTOLOZANE SULFATE\TAZOBACTAM SODIUM
     Indication: CYSTIC FIBROSIS
     Dosage: FREQUENCY - Q8
     Route: 042
     Dates: start: 20171012

REACTIONS (2)
  - Cheilitis [None]
  - Paraesthesia oral [None]

NARRATIVE: CASE EVENT DATE: 20171012
